FAERS Safety Report 19935860 (Version 1)
Quarter: 2021Q4

REPORT INFORMATION
  Report Type: Report from Study
  Country: US (occurrence: US)
  Receive Date: 20211009
  Receipt Date: 20211009
  Transmission Date: 20220303
  Serious: Yes (Other)
  Sender: FDA-Public Use
  Company Number: US-NOVARTISPH-NVSC2021US227988

PATIENT
  Sex: Male

DRUGS (1)
  1. ENTRESTO [Suspect]
     Active Substance: SACUBITRIL\VALSARTAN
     Indication: Cardiac failure
     Dosage: 50 MG (24/26 MG), BID
     Route: 048
     Dates: start: 202011

REACTIONS (2)
  - Renal cell carcinoma [Recovering/Resolving]
  - Renal neoplasm [Recovering/Resolving]

NARRATIVE: CASE EVENT DATE: 20210101
